FAERS Safety Report 9345874 (Version 2)
Quarter: 2013Q3

REPORT INFORMATION
  Report Type: Spontaneous
  Country: US (occurrence: US)
  Receive Date: 20130613
  Receipt Date: 20130703
  Transmission Date: 20140515
  Serious: Yes (Death, Other)
  Sender: FDA-Public Use
  Company Number: US-PFIZER INC-2013174018

PATIENT
  Age: 82 Year
  Sex: Male

DRUGS (2)
  1. SUTENT [Suspect]
     Indication: RENAL CANCER
     Dosage: 50 MG, UNK
     Dates: start: 20130301
  2. SUTENT [Suspect]
     Dosage: 50 MG, CYCLIC (DAILY 4WKS ON 2WKS OFF)
     Dates: start: 20130304

REACTIONS (3)
  - Disease progression [Fatal]
  - Renal cancer [Fatal]
  - Pancytopenia [Unknown]
